FAERS Safety Report 9092783 (Version 1)
Quarter: 2013Q1

REPORT INFORMATION
  Report Type: Spontaneous
  Country: US (occurrence: None)
  Receive Date: 20130213
  Receipt Date: 20130213
  Transmission Date: 20140127
  Serious: Yes (Other)
  Sender: FDA-Public Use
  Company Number: None

PATIENT
  Age: 28 Year
  Sex: Female
  Weight: 103.42 kg

DRUGS (1)
  1. DEVICE [Suspect]

REACTIONS (5)
  - Abdominal pain [None]
  - Metrorrhagia [None]
  - Menstruation irregular [None]
  - Pain in extremity [None]
  - Constipation [None]
